FAERS Safety Report 25050309 (Version 1)
Quarter: 2025Q1

REPORT INFORMATION
  Report Type: Spontaneous
  Country: CO (occurrence: CO)
  Receive Date: 20250307
  Receipt Date: 20250307
  Transmission Date: 20250409
  Serious: Yes (Hospitalization)
  Sender: REGENERON
  Company Number: CO-SA-2024SA275794

PATIENT
  Age: 66 Year
  Sex: Female

DRUGS (1)
  1. PRALUENT [Suspect]
     Active Substance: ALIROCUMAB
     Indication: Hypercholesterolaemia
     Dosage: 150 MG, QOW
     Route: 058
     Dates: start: 2024

REACTIONS (8)
  - Headache [Unknown]
  - Abdominal pain [Unknown]
  - Back pain [Unknown]
  - Influenza [Unknown]
  - Cough [Unknown]
  - Dysphonia [Recovered/Resolved]
  - Respiratory tract congestion [Unknown]
  - Feeling of despair [Recovered/Resolved]

NARRATIVE: CASE EVENT DATE: 20240801
